FAERS Safety Report 24455373 (Version 2)
Quarter: 2024Q4

REPORT INFORMATION
  Report Type: Spontaneous
  Country: CN (occurrence: CN)
  Receive Date: 20241017
  Receipt Date: 20241018
  Transmission Date: 20250115
  Serious: No
  Sender: ROCHE
  Company Number: CN-ROCHE-3489656

PATIENT
  Age: 70 Year
  Sex: Female
  Weight: 54.5 kg

DRUGS (4)
  1. MABTHERA [Suspect]
     Active Substance: RITUXIMAB
     Indication: Glomerulonephritis membranous
     Route: 041
     Dates: start: 20230417
  2. MABTHERA [Suspect]
     Active Substance: RITUXIMAB
     Indication: Nephrotic syndrome
     Route: 041
     Dates: start: 20230605, end: 20230605
  3. PREDNISONE [Concomitant]
     Active Substance: PREDNISONE
     Indication: Glomerulonephritis membranous
     Dosage: ON 05-JUN-2023 DOSE REDUCED.
     Route: 048
     Dates: start: 20230417
  4. ENTECAVIR [Concomitant]
     Active Substance: ENTECAVIR
     Indication: Glomerulonephritis membranous
     Dosage: 17-APR-2023, 05-JUN-2023
     Route: 048
     Dates: start: 20230417

REACTIONS (2)
  - Sporotrichosis [Not Recovered/Not Resolved]
  - Off label use [Unknown]

NARRATIVE: CASE EVENT DATE: 20231207
